FAERS Safety Report 5058529-1 (Version None)
Quarter: 2006Q2

REPORT INFORMATION
  Report Type: 
  Country: None (occurrence: None)
  Receive Date: 20060627
  Receipt Date: 20051223
  Transmission Date: 20061013
  Serious: Yes (Hospitalization)
  Sender: FDA-Public Use
  Company Number: 429776

PATIENT
  Age: 75 Year
  Sex: Female

DRUGS (1)
  1. XELODA [Suspect]
     Indication: UNEVALUABLE EVENT
     Dosage: ORAL
     Route: 048

REACTIONS (1)
  - DIARRHOEA [None]
